FAERS Safety Report 17041241 (Version 2)
Quarter: 2019Q4

REPORT INFORMATION
  Report Type: Spontaneous
  Country: PT (occurrence: PT)
  Receive Date: 20191118
  Receipt Date: 20191206
  Transmission Date: 20200122
  Serious: Yes (Hospitalization, Disabling, Other)
  Sender: FDA-Public Use
  Company Number: PT-AUROBINDO-AUR-APL-2019-072058

PATIENT
  Age: 21 Month

DRUGS (2)
  1. PARACETAMOL [Suspect]
     Active Substance: ACETAMINOPHEN
     Indication: PYREXIA
     Dosage: 15 MILLIGRAM/KILOGRAM, 3 TIMES A DAY
     Route: 065
  2. IBUPROFEN 100MG/5ML [Suspect]
     Active Substance: IBUPROFEN
     Indication: PYREXIA
     Dosage: 7 MILLIGRAM/KILOGRAM, 3 TIMES A DAY
     Route: 065

REACTIONS (3)
  - Varicella zoster virus infection [Recovering/Resolving]
  - Dermatitis allergic [Recovering/Resolving]
  - Condition aggravated [Recovering/Resolving]
